FAERS Safety Report 16856249 (Version 3)
Quarter: 2019Q4

REPORT INFORMATION
  Report Type: Spontaneous
  Country: US (occurrence: US)
  Receive Date: 20190926
  Receipt Date: 20191111
  Transmission Date: 20200122
  Serious: No
  Sender: FDA-Public Use
  Company Number: US-PFIZER INC-2019414720

PATIENT
  Age: 51 Year
  Sex: Female
  Weight: 109.77 kg

DRUGS (1)
  1. PREGABALIN. [Suspect]
     Active Substance: PREGABALIN
     Indication: NEUROPATHY PERIPHERAL
     Dosage: 500 MG, DAILY (200MG TWO TIMES A DAY AND 100MG ONCE A DAY)
     Route: 048
     Dates: start: 20190801

REACTIONS (1)
  - Urticaria [Unknown]
